FAERS Safety Report 18629914 (Version 1)
Quarter: 2020Q4

REPORT INFORMATION
  Report Type: Spontaneous
  Country: US (occurrence: US)
  Receive Date: 20201217
  Receipt Date: 20201217
  Transmission Date: 20210114
  Serious: No
  Sender: FDA-Public Use
  Company Number: US-OCULAR THERAPEUTIX-2020OCX00023

PATIENT
  Sex: Female

DRUGS (1)
  1. DEXTENZA [Suspect]
     Active Substance: DEXAMETHASONE
     Dosage: UNK
     Route: 047
     Dates: start: 20200713

REACTIONS (4)
  - Uveitis [Unknown]
  - Eye pruritus [Unknown]
  - Aqueous fibrin [Unknown]
  - Anterior chamber inflammation [Unknown]

NARRATIVE: CASE EVENT DATE: 202009
